FAERS Safety Report 8432516-5 (Version None)
Quarter: 2012Q2

REPORT INFORMATION
  Report Type: 
  Country: None (occurrence: None)
  Receive Date: 20120613
  Receipt Date: 20120611
  Transmission Date: 20120825
  Serious: Yes (Other)
  Sender: FDA-Public Use
  Company Number: PHHY2011US27672

PATIENT
  Sex: Female
  Weight: 41.723 kg

DRUGS (4)
  1. BACLOFEN [Concomitant]
     Indication: MUSCLE SPASMS
     Dosage: 1 DF, TID
     Route: 048
  2. GILENYA [Suspect]
     Indication: MULTIPLE SCLEROSIS
     Dosage: 0.5 MG, QD
     Route: 048
     Dates: start: 20110308, end: 20110919
  3. GILENYA [Suspect]
     Dosage: 2 DF, UNK
     Route: 048
     Dates: start: 20110401
  4. AVONEX [Concomitant]
     Indication: MULTIPLE SCLEROSIS
     Dosage: 1 DF, QW
     Route: 030

REACTIONS (9)
  - CHEST DISCOMFORT [None]
  - HYPOTONIA [None]
  - ABDOMINAL DISTENSION [None]
  - THYROID NEOPLASM [None]
  - DYSPNOEA [None]
  - OESOPHAGITIS [None]
  - OVERDOSE [None]
  - DECREASED APPETITE [None]
  - WEIGHT DECREASED [None]
